FAERS Safety Report 5201360-4 (Version None)
Quarter: 2006Q4

REPORT INFORMATION
  Report Type: 
  Country: None (occurrence: None)
  Receive Date: 20061016
  Receipt Date: 20051214
  Transmission Date: 20070319
  Serious: Yes (Other)
  Sender: FDA-Public Use
  Company Number: 23272

PATIENT
  Sex: Female

DRUGS (2)
  1. CYTARABINE [Suspect]
     Indication: ACUTE MYELOID LEUKAEMIA
  2. DAUNORUBICIN HCL [Suspect]

REACTIONS (5)
  - CATHETER RELATED INFECTION [None]
  - COLITIS [None]
  - DEEP VEIN THROMBOSIS [None]
  - FEBRILE INFECTION [None]
  - INFECTION [None]
